FAERS Safety Report 7779561-0 (Version None)
Quarter: 2011Q3

REPORT INFORMATION
  Report Type: 
  Country: None (occurrence: None)
  Receive Date: 20110927
  Receipt Date: 20110914
  Transmission Date: 20111222
  Serious: Yes (Life-Threatening, Hospitalization)
  Sender: FDA-Public Use
  Company Number: US-BAYER-2011-024083

PATIENT
  Age: 36 Year
  Sex: Female
  Weight: 59 kg

DRUGS (5)
  1. CHORIONIC GONADOTROPIN [Concomitant]
     Indication: WEIGHT DECREASED
     Dosage: UNK
     Dates: start: 20090601
  2. IBUPROFEN [Concomitant]
     Dosage: UNK
     Dates: start: 20070101
  3. YAZ [Suspect]
     Indication: ORAL CONTRACEPTION
     Dosage: UNK
     Dates: start: 20070801, end: 20090809
  4. TYLENOL PM [Concomitant]
     Dosage: UNK
     Dates: start: 20000101
  5. ASCORBIC ACID [Concomitant]
     Dosage: UNK
     Dates: start: 20000101, end: 20100101

REACTIONS (8)
  - FLANK PAIN [None]
  - QUALITY OF LIFE DECREASED [None]
  - PULMONARY EMBOLISM [None]
  - PAINFUL RESPIRATION [None]
  - EMOTIONAL DISTRESS [None]
  - PAIN [None]
  - INJURY [None]
  - DYSPNOEA [None]
